FAERS Safety Report 4373118-X (Version None)
Quarter: 2004Q2

REPORT INFORMATION
  Report Type: 
  Country: None (occurrence: None)
  Receive Date: 20040603
  Receipt Date: 20040518
  Transmission Date: 20050107
  Serious: Yes (Death)
  Sender: FDA-Public Use
  Company Number: USA040568144

PATIENT
  Age: 74 Year
  Sex: Male

DRUGS (1)
  1. HUMALOG [Suspect]
     Indication: DIABETES MELLITUS
     Dates: start: 19890101

REACTIONS (4)
  - HEPATIC FIBROSIS [None]
  - POLYMYOSITIS [None]
  - PORTAL HYPERTENSION [None]
  - VASCULITIS [None]
